FAERS Safety Report 18097976 (Version 7)
Quarter: 2020Q4

REPORT INFORMATION
  Report Type: Spontaneous
  Country: US (occurrence: US)
  Receive Date: 20200731
  Receipt Date: 20201202
  Transmission Date: 20210113
  Serious: Yes (Other)
  Sender: FDA-Public Use
  Company Number: US-AMGEN-USASP2020121732

PATIENT
  Age: 79 Year
  Sex: Female

DRUGS (2)
  1. PROLIA [Suspect]
     Active Substance: DENOSUMAB
     Indication: OSTEOPOROSIS POSTMENOPAUSAL
     Dosage: 60 MILLIGRAM, Q6MO
     Route: 065
     Dates: end: 202005
  2. OXYGEN. [Concomitant]
     Active Substance: OXYGEN
     Dosage: UNK

REACTIONS (10)
  - Tooth fracture [Unknown]
  - Spinal stenosis [Unknown]
  - Necrosis [Unknown]
  - Hypoacusis [Unknown]
  - Back pain [Unknown]
  - Tooth extraction [Unknown]
  - Gingival recession [Unknown]
  - Tooth loss [Unknown]
  - Secretion discharge [Unknown]
  - Oral pain [Unknown]

NARRATIVE: CASE EVENT DATE: 202002
